FAERS Safety Report 5980547-7 (Version None)
Quarter: 2008Q4

REPORT INFORMATION
  Report Type: 
  Country: None (occurrence: None)
  Receive Date: 20081205
  Receipt Date: 20080117
  Transmission Date: 20090506
  Serious: No
  Sender: FDA-Public Use
  Company Number: A0703740A

PATIENT
  Age: 51 Year
  Sex: Male

DRUGS (1)
  1. COMMIT [Suspect]
     Dates: start: 20080109, end: 20080115

REACTIONS (5)
  - HYPERSENSITIVITY [None]
  - INSOMNIA [None]
  - NERVOUSNESS [None]
  - PRURITUS GENERALISED [None]
  - VOMITING [None]
